FAERS Safety Report 21015083 (Version 1)
Quarter: 2022Q2

REPORT INFORMATION
  Report Type: Spontaneous
  Country: US (occurrence: US)
  Receive Date: 20220628
  Receipt Date: 20220628
  Transmission Date: 20220721
  Serious: No
  Sender: FDA-Public Use
  Company Number: US-BRISTOL-MYERS SQUIBB COMPANY-2022-055733

PATIENT

DRUGS (1)
  1. NULOJIX [Suspect]
     Active Substance: BELATACEPT
     Indication: Product used for unknown indication
     Dosage: STRENGTH AND PRESENTATION OF THE AE : NULOJIX 250 MG VIALS, TWO VIALS SO A TOTAL OF 500MG.

REACTIONS (2)
  - Intercepted product preparation error [Unknown]
  - Product preparation error [None]
